FAERS Safety Report 8197656-7 (Version None)
Quarter: 2012Q1

REPORT INFORMATION
  Report Type: 
  Country: None (occurrence: None)
  Receive Date: 20120309
  Receipt Date: 20120301
  Transmission Date: 20120608
  Serious: Yes (Death, Hospitalization)
  Sender: FDA-Public Use
  Company Number: US-PFIZER INC-2012056821

PATIENT
  Age: 12 Year
  Sex: Female

DRUGS (3)
  1. ARGATROBAN [Suspect]
     Dosage: 10 MG, UNK
  2. HEPARIN SODIUM [Suspect]
     Dosage: 2.2 LITER/MIN/M2
  3. LEPIRUDIN [Suspect]

REACTIONS (3)
  - FIBRINOLYSIS [None]
  - THROMBOSIS IN DEVICE [None]
  - BLEEDING TIME PROLONGED [None]
